FAERS Safety Report 24462691 (Version 1)
Quarter: 2024Q4

REPORT INFORMATION
  Report Type: Spontaneous
  Country: FR (occurrence: FR)
  Receive Date: 20241018
  Receipt Date: 20241018
  Transmission Date: 20250114
  Serious: Yes (Hospitalization)
  Sender: TEVA
  Company Number: None

PATIENT
  Age: 45 Year
  Sex: Female
  Weight: 70 kg

DRUGS (10)
  1. DULOXETINE [Interacting]
     Active Substance: DULOXETINE
     Indication: Depression
     Route: 048
     Dates: end: 20240319
  2. DULOXETINE [Interacting]
     Active Substance: DULOXETINE
     Indication: Depression
     Route: 048
     Dates: start: 20240328, end: 20240404
  3. DULOXETINE [Interacting]
     Active Substance: DULOXETINE
     Indication: Depression
     Dosage: DULOXETINE (HYDROCHLORIDE)
     Route: 048
     Dates: start: 20240320, end: 20240328
  4. DIAZEPAM [Concomitant]
     Active Substance: DIAZEPAM
     Indication: Product used for unknown indication
     Route: 048
     Dates: end: 20240308
  5. OLANZAPINE [Concomitant]
     Active Substance: OLANZAPINE
     Indication: Product used for unknown indication
     Route: 048
     Dates: start: 20240308
  6. OLANZAPINE [Concomitant]
     Active Substance: OLANZAPINE
     Indication: Product used for unknown indication
     Route: 048
     Dates: end: 20240307
  7. TRANXENE [Concomitant]
     Active Substance: CLORAZEPATE DIPOTASSIUM
     Indication: Product used for unknown indication
     Route: 048
  8. GABAPENTIN [Concomitant]
     Active Substance: GABAPENTIN
     Indication: Product used for unknown indication
     Route: 048
  9. CLOMIPRAMINE HYDROCHLORIDE [Interacting]
     Active Substance: CLOMIPRAMINE HYDROCHLORIDE
     Indication: Depression
     Route: 048
     Dates: end: 20240320
  10. DESOGESTREL [Concomitant]
     Active Substance: DESOGESTREL
     Indication: Product used for unknown indication
     Route: 048

REACTIONS (3)
  - Reversible cerebral vasoconstriction syndrome [Recovered/Resolved]
  - Drug interaction [Recovered/Resolved]
  - Drug interaction [Recovered/Resolved]

NARRATIVE: CASE EVENT DATE: 20240101
